FAERS Safety Report 7339219-9 (Version None)
Quarter: 2011Q1

REPORT INFORMATION
  Report Type: 
  Country: None (occurrence: None)
  Receive Date: 20110308
  Receipt Date: 20110301
  Transmission Date: 20110831
  Serious: Yes (Hospitalization)
  Sender: FDA-Public Use
  Company Number: BR-US-EMD SERONO, INC.-7045033

PATIENT
  Sex: Male

DRUGS (5)
  1. AMITRIPTYLINE [Concomitant]
  2. REBIF [Suspect]
     Indication: RELAPSING-REMITTING MULTIPLE SCLEROSIS
     Dates: start: 20080409, end: 20110228
  3. PARACETAMOL [Concomitant]
  4. DIAZEPAM [Concomitant]
  5. CAPTOPRIL [Concomitant]

REACTIONS (1)
  - MUSCULAR WEAKNESS [None]
